FAERS Safety Report 8738431 (Version 2)
Quarter: 2013Q4

REPORT INFORMATION
  Report Type: Spontaneous
  Country: FR (occurrence: FR)
  Receive Date: 20120823
  Receipt Date: 20131108
  Transmission Date: 20140711
  Serious: Yes (Life-Threatening, Other)
  Sender: FDA-Public Use
  Company Number: FR-009507513-2012SP019867

PATIENT
  Age: 49 Year
  Sex: Male

DRUGS (3)
  1. ESMERON [Suspect]
     Indication: GENERAL ANAESTHESIA
     Dosage: 40 MG, ONCE
     Route: 042
     Dates: start: 20120320, end: 20120320
  2. ULTIVA [Suspect]
     Indication: GENERAL ANAESTHESIA
     Dosage: 50 ?G, ONCE
     Route: 042
     Dates: start: 20120320, end: 20120320
  3. DIPRIVAN [Suspect]
     Indication: GENERAL ANAESTHESIA
     Dosage: 200 MG, ONCE
     Route: 042
     Dates: start: 20120320, end: 20120320

REACTIONS (3)
  - Anaphylactic shock [Recovered/Resolved]
  - Cardio-respiratory arrest [Recovered/Resolved]
  - Circulatory collapse [Recovered/Resolved]
